FAERS Safety Report 15680343 (Version 1)
Quarter: 2018Q4

REPORT INFORMATION
  Report Type: Spontaneous
  Country: SE (occurrence: SE)
  Receive Date: 20181203
  Receipt Date: 20181203
  Transmission Date: 20190205
  Serious: Yes (Other)
  Sender: FDA-Public Use
  Company Number: SE-NOVAST LABORATORIES, LTD-SE-2018NOV000408

PATIENT
  Sex: Female

DRUGS (2)
  1. MEDROXYPROGESTERONE [Suspect]
     Active Substance: MEDROXYPROGESTERONE
     Indication: ACROMEGALY
     Dosage: UNK
  2. LEVONEST [Suspect]
     Active Substance: ETHINYL ESTRADIOL\LEVONORGESTREL
     Indication: ACROMEGALY
     Dosage: UNK

REACTIONS (4)
  - Infertility [Unknown]
  - Weight increased [Unknown]
  - Menorrhagia [Unknown]
  - Uterine leiomyoma [Unknown]
